FAERS Safety Report 6641563-5 (Version None)
Quarter: 2010Q1

REPORT INFORMATION
  Report Type: 
  Country: None (occurrence: None)
  Receive Date: 20100317
  Receipt Date: 20100317
  Transmission Date: 20100710
  Serious: Yes (Other)
  Sender: FDA-Public Use
  Company Number: None

PATIENT
  Age: 70 Year
  Sex: Female
  Weight: 49.4 kg

DRUGS (10)
  1. GLIPIZIDE [Suspect]
     Indication: TYPE 2 DIABETES MELLITUS
     Dosage: 5 MG BID PO
     Route: 048
     Dates: start: 20100112
  2. HEPARIN [Concomitant]
  3. WARFARIN SODIUM [Concomitant]
  4. AMLODIPINE [Concomitant]
  5. ASPIRIN [Concomitant]
  6. DOCUSATE [Concomitant]
  7. ENALAPRIL MALEATE [Concomitant]
  8. ESITALOPRAM [Concomitant]
  9. FENOFIBRATE [Concomitant]
  10. PREDNISONE TAB [Concomitant]

REACTIONS (2)
  - ABDOMINAL DISTENSION [None]
  - HYPERHIDROSIS [None]
